FAERS Safety Report 7030810-6 (Version None)
Quarter: 2010Q4

REPORT INFORMATION
  Report Type: 
  Country: None (occurrence: None)
  Receive Date: 20101006
  Receipt Date: 20100930
  Transmission Date: 20110411
  Serious: No
  Sender: FDA-Public Use
  Company Number: US-PFIZER INC-2010124847

PATIENT
  Sex: Female
  Weight: 59 kg

DRUGS (5)
  1. CHANTIX [Suspect]
     Indication: SMOKING CESSATION THERAPY
     Dosage: UNK
     Route: 048
     Dates: start: 20100801, end: 20100901
  2. MILNACIPRAN [Suspect]
     Indication: DEPRESSION
     Dosage: 25 MG, 2X/DAY
     Route: 048
     Dates: start: 20100924, end: 20100927
  3. MILNACIPRAN [Suspect]
     Indication: FIBROMYALGIA
  4. CYMBALTA [Concomitant]
     Indication: PAIN
     Dosage: UNK
  5. CYMBALTA [Concomitant]
     Indication: DEPRESSION

REACTIONS (7)
  - ANXIETY [None]
  - CHEST DISCOMFORT [None]
  - DEPRESSION [None]
  - NERVOUSNESS [None]
  - NIGHTMARE [None]
  - SOMNOLENCE [None]
  - WEIGHT INCREASED [None]
